FAERS Safety Report 9653278 (Version 2)
Quarter: 2013Q4

REPORT INFORMATION
  Report Type: Spontaneous
  Country: CA (occurrence: CA)
  Receive Date: 20131029
  Receipt Date: 20131029
  Transmission Date: 20140711
  Serious: Yes (Hospitalization, Other)
  Sender: FDA-Public Use
  Company Number: CA-ABBVIE-13P-028-1042877-00

PATIENT
  Age: 46 Year
  Sex: Male

DRUGS (10)
  1. KALETRA [Suspect]
     Indication: PRODUCT USED FOR UNKNOWN INDICATION
  2. VALPROIC ACID [Suspect]
     Indication: CONVULSION
     Dates: start: 201012
  3. VALPROIC ACID [Suspect]
     Dates: start: 200801
  4. VALPROIC ACID [Suspect]
     Dates: start: 200706
  5. CLOBAZAM [Suspect]
     Indication: CONVULSION
     Dates: start: 200810
  6. CLOBAZAM [Suspect]
     Dates: start: 200801
  7. CLOBAZAM [Suspect]
     Dates: start: 201012
  8. INTELENCE [Suspect]
     Indication: PRODUCT USED FOR UNKNOWN INDICATION
  9. ISENTRESS [Suspect]
     Indication: PRODUCT USED FOR UNKNOWN INDICATION
  10. TRUVADA [Suspect]
     Indication: PRODUCT USED FOR UNKNOWN INDICATION

REACTIONS (10)
  - Dysarthria [Recovered/Resolved]
  - Asthenia [Recovered/Resolved]
  - Drug interaction [Recovered/Resolved]
  - Drug level increased [Recovered/Resolved]
  - Gait disturbance [Recovered/Resolved]
  - Neurotoxicity [Recovered/Resolved]
  - Somnolence [Recovered/Resolved]
  - Convulsion [Unknown]
  - Central nervous system lesion [Unknown]
  - Drug resistance [Unknown]
